FAERS Safety Report 9752034 (Version 2)
Quarter: 2013Q4

REPORT INFORMATION
  Report Type: Spontaneous
  Country: IT (occurrence: None)
  Receive Date: 20131211
  Receipt Date: 20131227
  Transmission Date: 20140711
  Serious: Yes (Other)
  Sender: FDA-Public Use
  Company Number: AUR-APL-2013-10312

PATIENT
  Age: 47 Year
  Sex: Female

DRUGS (4)
  1. CARVEDILOL [Suspect]
     Indication: HYPERTENSION
     Route: 048
     Dates: start: 20130909, end: 20130909
  2. DELTACORTENE (PREDNISONE) [Concomitant]
  3. FLEXIBAN (CYCLOBENZAPRINE HYDROCHLORIDE) [Concomitant]
  4. LANSOPRAZOLE (LANSOPRAZOLE) [Concomitant]

REACTIONS (7)
  - Hyperhidrosis [None]
  - Pallor [None]
  - Syncope [None]
  - Diarrhoea [None]
  - Overdose [None]
  - Drug abuse [None]
  - Heart rate decreased [None]
